FAERS Safety Report 6241817-0 (Version None)
Quarter: 2009Q2

REPORT INFORMATION
  Report Type: 
  Country: None (occurrence: None)
  Receive Date: 20090623
  Receipt Date: 20090615
  Transmission Date: 20091009
  Serious: Yes (Other)
  Sender: FDA-Public Use
  Company Number: JP-PFIZER INC-2009228768

PATIENT
  Age: 66 Year

DRUGS (1)
  1. NORVASC [Suspect]
     Indication: HYPERTENSION
     Dosage: UNK
     Route: 048
     Dates: start: 20081003

REACTIONS (2)
  - ERYTHEMA [None]
  - ORAL DISORDER [None]
